FAERS Safety Report 8449664-6 (Version None)
Quarter: 2012Q2

REPORT INFORMATION
  Report Type: 
  Country: None (occurrence: None)
  Receive Date: 20120605
  Receipt Date: 20120522
  Transmission Date: 20120825
  Serious: Yes (Death, Hospitalization)
  Sender: FDA-Public Use
  Company Number: 2012PROUSA01345

PATIENT
  Age: 67 Year
  Sex: Male
  Weight: 89.8 kg

DRUGS (16)
  1. PLAVIX [Concomitant]
  2. COZAAR [Concomitant]
  3. METFORMIN HCL [Concomitant]
  4. FLOMAX [Concomitant]
  5. BICALUTAMIDE [Concomitant]
  6. GLIMEPIRIDE [Concomitant]
  7. OMEPRAZOLE [Concomitant]
  8. LIPITOR [Concomitant]
  9. METOCLOPRAMIDE [Concomitant]
  10. B-COMPLEX (CALCIUM PANTOTHENATE, NICOTINAMIDE, PYRIDOXINE HYDROCHLORID [Concomitant]
  11. VITAMIC C (ASCORBIC ACID) [Concomitant]
  12. ISOSORBIDE [Concomitant]
  13. ASPIRIN [Concomitant]
  14. VESICARE [Concomitant]
  15. PROVENGE [Suspect]
     Indication: PROSTATE CANCER METASTATIC
     Dosage: 250 ML, SINGLE, INTRAVENOUS
     Route: 042
     Dates: start: 20120319, end: 20120319
  16. PROVENGE [Suspect]
     Indication: PROSTATE CANCER METASTATIC
     Dosage: 250 ML, SINGLE, INTRAVENOUS
     Route: 042
     Dates: start: 20120405, end: 20120405

REACTIONS (9)
  - CHEST PAIN [None]
  - POLLAKIURIA [None]
  - CENTRAL NERVOUS SYSTEM HAEMORRHAGE [None]
  - DECREASED APPETITE [None]
  - BONE PAIN [None]
  - WEIGHT DECREASED [None]
  - DIARRHOEA [None]
  - ASTHENIA [None]
  - HEADACHE [None]
